FAERS Safety Report 21555680 (Version 1)
Quarter: 2022Q4

REPORT INFORMATION
  Report Type: Spontaneous
  Country: US (occurrence: None)
  Receive Date: 20221103
  Receipt Date: 20221103
  Transmission Date: 20230112
  Serious: Yes (Disabling)
  Sender: FDA-Public Use
  Company Number: None

PATIENT
  Age: 61 Year
  Sex: Male
  Weight: 117 kg

DRUGS (5)
  1. MONTELUKAST SODIUM [Suspect]
     Active Substance: MONTELUKAST SODIUM
     Indication: Asthma
     Dosage: FREQUENCY : DAILY;?
     Route: 048
     Dates: start: 20221019, end: 20221103
  2. INSULIN NOS [Concomitant]
     Active Substance: INSULIN NOS
  3. blood pressure meds [Concomitant]
  4. ATORVASTATIN [Concomitant]
     Active Substance: ATORVASTATIN
  5. VENLAFAXINE [Concomitant]
     Active Substance: VENLAFAXINE HYDROCHLORIDE

REACTIONS (3)
  - Tinnitus [None]
  - Deafness [None]
  - Myalgia [None]

NARRATIVE: CASE EVENT DATE: 20221030
